FAERS Safety Report 26066627 (Version 1)
Quarter: 2025Q4

REPORT INFORMATION
  Report Type: Spontaneous
  Country: US (occurrence: US)
  Receive Date: 20251119
  Receipt Date: 20251119
  Transmission Date: 20260118
  Serious: Yes (Other)
  Sender: NOVO NORDISK
  Company Number: US-NOVOPROD-1487191

PATIENT
  Age: 44 Year
  Sex: Female

DRUGS (2)
  1. NOVOLOG [Suspect]
     Active Substance: INSULIN ASPART
     Dosage: 25-30 BASAL A DAY BOLUS AS NEEDED TYPICALLY SHE THINKS IT IS MAYBE AROUND 35 UNITS A DAY
     Route: 058
  2. NOVOLOG [Suspect]
     Active Substance: INSULIN ASPART
     Indication: Type 1 diabetes mellitus
     Dosage: 25-30 BASAL A DAY BOLUS AS NEEDED TYPICALLY SHE THINKS IT IS MAYBE AROUND 35 UNITS A DAY
     Route: 058

REACTIONS (2)
  - Blood glucose increased [Unknown]
  - Swelling [Unknown]
